FAERS Safety Report 22264587 (Version 1)
Quarter: 2023Q2

REPORT INFORMATION
  Report Type: Other
  Country: GB (occurrence: GB)
  Receive Date: 20230428
  Receipt Date: 20230428
  Transmission Date: 20230722
  Serious: Yes (Hospitalization, Disabling, Other)
  Sender: FDA-Public Use
  Company Number: GB-MHRA-MED-202304181611566890-NPCRM

PATIENT

DRUGS (5)
  1. TOPIRAMATE [Suspect]
     Active Substance: TOPIRAMATE
     Indication: Idiopathic intracranial hypertension
     Dosage: 25 MILLIGRAM, BID (25MG BD)
     Route: 065
     Dates: start: 20230313
  2. TOPIRAMATE [Suspect]
     Active Substance: TOPIRAMATE
     Dosage: 50 MILLIGRAM, BID ( 50MG TWICE DAILY)
     Route: 065
     Dates: start: 20230403
  3. TOPIRAMATE [Suspect]
     Active Substance: TOPIRAMATE
     Dosage: 25 MILLIGRAM, AM (25MG AM, 50MG PM)
     Route: 065
  4. TOPIRAMATE [Suspect]
     Active Substance: TOPIRAMATE
     Dosage: 50 MILLIGRAM, HS (25MG AM, 50MG PM))
     Route: 065
     Dates: end: 20230412
  5. IBUPROFEN [Concomitant]
     Active Substance: IBUPROFEN
     Indication: Idiopathic intracranial hypertension
     Dosage: UNK
     Route: 065
     Dates: start: 20221201, end: 20230412

REACTIONS (3)
  - Tubulointerstitial nephritis [Recovering/Resolving]
  - Vomiting [Unknown]
  - Nausea [Unknown]

NARRATIVE: CASE EVENT DATE: 20230412
